FAERS Safety Report 4437674-5 (Version None)
Quarter: 2004Q3

REPORT INFORMATION
  Report Type: 
  Country: None (occurrence: None)
  Receive Date: 20040831
  Receipt Date: 20030610
  Transmission Date: 20050211
  Serious: No
  Sender: FDA-Public Use
  Company Number: US-GLAXOSMITHKLINE-A0411936A

PATIENT
  Age: 64 Year
  Sex: Female

DRUGS (3)
  1. ZOVIRAX [Suspect]
     Route: 061
     Dates: start: 20030609, end: 20030610
  2. CARDIAC MEDICATION [Concomitant]
     Route: 065
  3. ANALGESIC LIQ [Concomitant]
     Route: 065

REACTIONS (2)
  - APPLICATION SITE PAIN [None]
  - PHARMACEUTICAL PRODUCT COMPLAINT [None]
